FAERS Safety Report 10398071 (Version 2)
Quarter: 2014Q3

REPORT INFORMATION
  Report Type: Spontaneous
  Country: FR (occurrence: FR)
  Receive Date: 20140821
  Receipt Date: 20140821
  Transmission Date: 20150326
  Serious: Yes (Other)
  Sender: FDA-Public Use
  Company Number: FR-LEO PHARMA-228802

PATIENT
  Age: 53 Year
  Sex: Female
  Weight: 55 kg

DRUGS (3)
  1. PROGESTAN [Concomitant]
     Active Substance: PROGESTERONE
     Indication: PRODUCT USED FOR UNKNOWN INDICATION
  2. ESTREVA [Concomitant]
     Active Substance: ESTRADIOL
     Indication: PRODUCT USED FOR UNKNOWN INDICATION
  3. PICATO [Suspect]
     Active Substance: INGENOL MEBUTATE
     Indication: ACTINIC KERATOSIS
     Route: 061
     Dates: start: 20140527, end: 20140527

REACTIONS (7)
  - Application site pain [Recovered/Resolved]
  - Application site vesicles [Recovered/Resolved]
  - Incorrect drug administration duration [Unknown]
  - Application site discolouration [Recovering/Resolving]
  - Application site erythema [Recovered/Resolved]
  - Application site scab [Recovered/Resolved]
  - Application site pustules [Recovering/Resolving]

NARRATIVE: CASE EVENT DATE: 20140527
